FAERS Safety Report 8575156 (Version 3)
Quarter: 2013Q1

REPORT INFORMATION
  Report Type: Spontaneous
  Country: US (occurrence: CA)
  Receive Date: 20120523
  Receipt Date: 20130117
  Transmission Date: 20140127
  Serious: Yes (Hospitalization, Other)
  Sender: FDA-Public Use
  Company Number: PHHY2012CA043377

PATIENT
  Age: 43 Year
  Sex: Male

DRUGS (5)
  1. CLOZARIL [Suspect]
     Indication: PSYCHOTIC DISORDER
     Dosage: 100 MG, QD
     Route: 048
  2. CLOZARIL [Suspect]
     Dosage: 300 MG, QD
     Route: 048
  3. CARBAMAZEPINE [Suspect]
     Dosage: 1800 MG, QD
  4. KEPPRA [Concomitant]
     Dosage: 2500 MG, QD
  5. ABILIFY [Concomitant]
     Dosage: 15 MG, QD

REACTIONS (4)
  - Convulsion [Unknown]
  - Cough [Unknown]
  - Schizophrenia [Unknown]
  - Brain injury [Unknown]
